FAERS Safety Report 8507114-5 (Version None)
Quarter: 2012Q3

REPORT INFORMATION
  Report Type: 
  Country: None (occurrence: None)
  Receive Date: 20120712
  Receipt Date: 20120710
  Transmission Date: 20120928
  Serious: Yes (Other)
  Sender: FDA-Public Use
  Company Number: US-JNJFOC-20120705040

PATIENT
  Sex: Female
  Weight: 68.95 kg

DRUGS (1)
  1. SIMPONI [Suspect]
     Indication: PSORIATIC ARTHROPATHY
     Route: 058
     Dates: start: 20120615

REACTIONS (3)
  - NYSTAGMUS [None]
  - VERTIGO [None]
  - FATIGUE [None]
